FAERS Safety Report 8353347-0 (Version None)
Quarter: 2012Q2

REPORT INFORMATION
  Report Type: 
  Country: None (occurrence: None)
  Receive Date: 20120511
  Receipt Date: 20120507
  Transmission Date: 20120825
  Serious: Yes (Hospitalization)
  Sender: FDA-Public Use
  Company Number: PHHY2012FR039774

PATIENT
  Sex: Male

DRUGS (5)
  1. RASILEZ [Suspect]
     Indication: HYPERTENSION
     Dosage: UNK
     Dates: start: 20110101, end: 20120301
  2. PREDNISONE TAB [Concomitant]
  3. PLAVIX [Concomitant]
     Dosage: 75 MG, UNK
     Route: 048
  4. ANDROCUR [Concomitant]
     Indication: PROSTATE CANCER
     Dosage: UNK
     Route: 048
  5. DEXAMETHASONE [Concomitant]

REACTIONS (2)
  - THROMBOCYTOPENIA [None]
  - PETECHIAE [None]
